FAERS Safety Report 19651458 (Version 1)
Quarter: 2021Q3

REPORT INFORMATION
  Report Type: Report from Study
  Country: CA (occurrence: CA)
  Receive Date: 20210803
  Receipt Date: 20210803
  Transmission Date: 20211014
  Serious: Yes (Other)
  Sender: FDA-Public Use
  Company Number: CA-ACCORD-234134

PATIENT
  Age: 74 Year
  Sex: Female

DRUGS (8)
  1. CLONAZEPAM. [Concomitant]
     Active Substance: CLONAZEPAM
  2. MAGNESIUM [Concomitant]
     Active Substance: MAGNESIUM
  3. RABEPRAZOLE/RABEPRAZOLE SODIUM [Concomitant]
     Active Substance: RABEPRAZOLE SODIUM
  4. BACLOFEN. [Concomitant]
     Active Substance: BACLOFEN
  5. ASA [Concomitant]
     Active Substance: ASPIRIN
     Route: 065
  6. ATORVASTATIN [Concomitant]
     Active Substance: ATORVASTATIN
  7. GABAPENTIN. [Concomitant]
     Active Substance: GABAPENTIN
  8. MYCOPHENOLIC ACID. [Suspect]
     Active Substance: MYCOPHENOLIC ACID
     Indication: NEUROMYELITIS OPTICA SPECTRUM DISORDER

REACTIONS (6)
  - Blood pressure fluctuation [Unknown]
  - Intentional product use issue [Unknown]
  - Respiratory rate increased [Unknown]
  - Off label use [Unknown]
  - Hypotension [Unknown]
  - Seizure [Unknown]
